FAERS Safety Report 7247242 (Version 2)
Quarter: 2013Q2

REPORT INFORMATION
  Report Type: Spontaneous
  Country: US (occurrence: US)
  Receive Date: 20100115
  Receipt Date: 20130531
  Transmission Date: 20140414
  Serious: Yes (Death)
  Sender: FDA-Public Use
  Company Number: US-PFIZER INC-2010001667

PATIENT
  Age: 37 Year
  Sex: Female

DRUGS (4)
  1. ALPRAZOLAM [Suspect]
     Dosage: UNK
     Route: 048
  2. ZOLPIDEM [Suspect]
     Dosage: UNK
     Route: 048
  3. ACETAMINOPHEN W/HYDROCODONE BITARTRATE [Suspect]
     Dosage: UNK
     Route: 048
  4. CARISOPRODOL [Suspect]
     Dosage: UNK
     Route: 048

REACTIONS (1)
  - Completed suicide [Fatal]
